FAERS Safety Report 7477558-1 (Version None)
Quarter: 2011Q2

REPORT INFORMATION
  Report Type: 
  Country: None (occurrence: None)
  Receive Date: 20110513
  Receipt Date: 20110503
  Transmission Date: 20111010
  Serious: Yes (Other)
  Sender: FDA-Public Use
  Company Number: DK-RANBAXY-2011RR-44285

PATIENT
  Sex: Male

DRUGS (3)
  1. DIAZEPAM [Suspect]
     Indication: PAIN
     Dosage: UNK
     Route: 048
     Dates: start: 20090101, end: 20100101
  2. GABAPENTIN [Suspect]
     Indication: PAIN
     Dosage: UNK
     Route: 048
     Dates: start: 20090101, end: 20100101
  3. CYMBALTA [Suspect]
     Indication: PAIN
     Dosage: UNK
     Route: 048
     Dates: start: 20090101, end: 20100101

REACTIONS (4)
  - FINE MOTOR DELAY [None]
  - TOOTH DISORDER [None]
  - DISTURBANCE IN ATTENTION [None]
  - ERECTILE DYSFUNCTION [None]
